FAERS Safety Report 5505021-3 (Version None)
Quarter: 2007Q4

REPORT INFORMATION
  Report Type: 
  Country: None (occurrence: None)
  Receive Date: 20071031
  Receipt Date: 20071031
  Transmission Date: 20080405
  Serious: Yes (Other)
  Sender: FDA-Public Use
  Company Number: None

PATIENT
  Age: 50 Year
  Sex: Female
  Weight: 54.4316 kg

DRUGS (2)
  1. ZOLOFT [Suspect]
     Indication: DEATH OF RELATIVE
     Dosage: 50 MG ONCE A DAY PO
     Route: 048
     Dates: start: 20060502, end: 20071001
  2. ZOLOFT [Suspect]
     Indication: DEPRESSION
     Dosage: 50 MG ONCE A DAY PO
     Route: 048
     Dates: start: 20060502, end: 20071001

REACTIONS (9)
  - DIZZINESS [None]
  - FALL [None]
  - IMPAIRED DRIVING ABILITY [None]
  - IMPAIRED WORK ABILITY [None]
  - MENTAL DISORDER [None]
  - PAIN IN EXTREMITY [None]
  - THREAT OF REDUNDANCY [None]
  - TREMOR [None]
  - WITHDRAWAL SYNDROME [None]
